FAERS Safety Report 25845703 (Version 1)
Quarter: 2025Q3

REPORT INFORMATION
  Report Type: Spontaneous
  Country: US (occurrence: US)
  Receive Date: 20250925
  Receipt Date: 20250925
  Transmission Date: 20251020
  Serious: Yes (Hospitalization)
  Sender: CSL BEHRING
  Company Number: US-BEH-2025219638

PATIENT
  Sex: Female

DRUGS (2)
  1. ANDEMBRY [Suspect]
     Active Substance: GARADACIMAB-GXII
     Indication: Hereditary angioedema
     Route: 058
     Dates: start: 202508
  2. ANDEMBRY [Suspect]
     Active Substance: GARADACIMAB-GXII
     Dosage: 1 PEN EVERY MONTH THEREAFTER
     Route: 058

REACTIONS (1)
  - Anaphylactic shock [Unknown]
